FAERS Safety Report 5405603-3 (Version None)
Quarter: 2007Q3

REPORT INFORMATION
  Report Type: 
  Country: None (occurrence: None)
  Receive Date: 20070806
  Receipt Date: 20070727
  Transmission Date: 20080115
  Serious: Yes (Hospitalization)
  Sender: FDA-Public Use
  Company Number: PHBS2007SK12573

PATIENT
  Age: 47 Year
  Sex: Female

DRUGS (1)
  1. LEPONEX [Suspect]
     Indication: SCHIZOPHRENIA
     Dosage: 150 MG/D
     Route: 065

REACTIONS (3)
  - CIRCULATORY COLLAPSE [None]
  - GENERAL PHYSICAL CONDITION ABNORMAL [None]
  - HYPOCHROMIC ANAEMIA [None]
